FAERS Safety Report 7102463-X (Version None)
Quarter: 2010Q4

REPORT INFORMATION
  Report Type: 
  Country: None (occurrence: None)
  Receive Date: 20101115
  Receipt Date: 20101110
  Transmission Date: 20110411
  Serious: No
  Sender: FDA-Public Use
  Company Number: US-BIOGENIDEC-2010BI039410

PATIENT
  Age: 54 Year
  Sex: Female

DRUGS (4)
  1. AVONEX [Suspect]
     Indication: MULTIPLE SCLEROSIS
     Route: 030
  2. AVONEX [Suspect]
     Route: 030
     Dates: end: 20101001
  3. AVONEX [Suspect]
     Route: 030
     Dates: start: 20101001, end: 20101001
  4. AVONEX [Suspect]
     Route: 030
     Dates: start: 20101101

REACTIONS (6)
  - DEPRESSED MOOD [None]
  - FEELING ABNORMAL [None]
  - KIDNEY INFECTION [None]
  - NEPHROLITHIASIS [None]
  - POOR QUALITY SLEEP [None]
  - VOMITING [None]
